FAERS Safety Report 11541522 (Version 1)
Quarter: 2015Q3

REPORT INFORMATION
  Report Type: Report from Study
  Country: US (occurrence: US)
  Receive Date: 20150923
  Receipt Date: 20150923
  Transmission Date: 20151125
  Serious: Yes (Other)
  Sender: FDA-Public Use
  Company Number: US-SA-2014SA135477

PATIENT
  Age: 63 Year
  Sex: Female
  Weight: 69.3 kg

DRUGS (2)
  1. CYMBALTA [Interacting]
     Active Substance: DULOXETINE HYDROCHLORIDE
     Indication: DEPRESSION
     Route: 065
  2. AUBAGIO [Suspect]
     Active Substance: TERIFLUNOMIDE
     Indication: MULTIPLE SCLEROSIS
     Route: 048
     Dates: start: 20140911

REACTIONS (6)
  - Drug interaction [Unknown]
  - Weight decreased [Not Recovered/Not Resolved]
  - Central nervous system lesion [Unknown]
  - Diarrhoea [Not Recovered/Not Resolved]
  - Limb discomfort [Unknown]
  - Feeling abnormal [Unknown]
